FAERS Safety Report 17562526 (Version 1)
Quarter: 2020Q1

REPORT INFORMATION
  Report Type: Spontaneous
  Country: BR (occurrence: BR)
  Receive Date: 20200319
  Receipt Date: 20200319
  Transmission Date: 20200409
  Serious: Yes (Other)
  Sender: FDA-Public Use
  Company Number: BR-009507513-2003BRA003770

PATIENT
  Sex: Male

DRUGS (2)
  1. TEMODAL [Suspect]
     Active Substance: TEMOZOLOMIDE
     Dosage: 100 MILLIGRAM, QD
     Route: 048
     Dates: start: 20200310
  2. TEMODAL [Suspect]
     Active Substance: TEMOZOLOMIDE
     Indication: BRAIN NEOPLASM
     Dosage: 250 MILLIGRAM, QD,  FOR 5 DAYS, PAUSING FOR 21 DAYS
     Route: 048
     Dates: start: 201909

REACTIONS (1)
  - Immunodeficiency [Unknown]
